FAERS Safety Report 13351555 (Version 2)
Quarter: 2017Q2

REPORT INFORMATION
  Report Type: Spontaneous
  Country: FR (occurrence: FR)
  Receive Date: 20170320
  Receipt Date: 20170406
  Transmission Date: 20170830
  Serious: Yes (Hospitalization, Other)
  Sender: FDA-Public Use
  Company Number: FR-SA-2017SA045083

PATIENT
  Age: 30 Year
  Sex: Female
  Weight: 107 kg

DRUGS (1)
  1. LOVENOX [Suspect]
     Active Substance: ENOXAPARIN SODIUM
     Indication: THROMBOSIS PROPHYLAXIS
     Dosage: LOVENOX 0.4ML
     Route: 058
     Dates: start: 20170222, end: 20170303

REACTIONS (3)
  - Portal vein thrombosis [Recovering/Resolving]
  - Nausea [Unknown]
  - Abdominal pain [Unknown]

NARRATIVE: CASE EVENT DATE: 20170303
